FAERS Safety Report 7516821-2 (Version None)
Quarter: 2011Q2

REPORT INFORMATION
  Report Type: 
  Country: None (occurrence: None)
  Receive Date: 20110601
  Receipt Date: 20110525
  Transmission Date: 20111010
  Serious: Yes (Hospitalization)
  Sender: FDA-Public Use
  Company Number: FR-MERCK-1104FRA00136

PATIENT
  Age: 50 Year
  Sex: Female

DRUGS (3)
  1. PROPRANOLOL HCL [Suspect]
     Indication: MIGRAINE
     Route: 048
     Dates: start: 20090217, end: 20110315
  2. MAXALT [Suspect]
     Indication: MIGRAINE
     Route: 048
     Dates: start: 20090217, end: 20110315
  3. PROPRANOLOL HCL [Suspect]
     Indication: HYPERTENSION
     Route: 048
     Dates: start: 20090217, end: 20110315

REACTIONS (4)
  - MYOCARDIAL ISCHAEMIA [None]
  - PRINZMETAL ANGINA [None]
  - DRUG ADMINISTRATION ERROR [None]
  - DRUG INTERACTION [None]
